FAERS Safety Report 8862398 (Version 1)
Quarter: 2012Q4

REPORT INFORMATION
  Report Type: 
  Country: FR (occurrence: FR)
  Receive Date: 20121026
  Receipt Date: 20121026
  Transmission Date: 20130627
  Serious: Yes (Hospitalization)
  Sender: FDA-Public Use
  Company Number: FR-PFIZER INC-2012263120

PATIENT
  Age: 66 Year
  Sex: Male

DRUGS (6)
  1. CAMPTO [Suspect]
     Dosage: UNK
     Route: 042
     Dates: start: 20120911, end: 20120911
  2. LERCAN [Concomitant]
     Dosage: 10 mg, 1x/day
  3. TOPALGIC [Concomitant]
     Dosage: 2x/day
  4. ATROPINE [Concomitant]
     Dosage: 0.25 mg, UNK
     Route: 058
  5. EMEND [Concomitant]
     Indication: PREMEDICATION
  6. ZOPHREN [Concomitant]
     Indication: PREMEDICATION

REACTIONS (4)
  - Hot flush [Recovered/Resolved]
  - Hyperhidrosis [Recovered/Resolved]
  - Hypothermia [Recovered/Resolved]
  - Presyncope [Recovered/Resolved]
